FAERS Safety Report 25298801 (Version 1)
Quarter: 2025Q2

REPORT INFORMATION
  Report Type: Spontaneous
  Country: US (occurrence: US)
  Receive Date: 20250512
  Receipt Date: 20250512
  Transmission Date: 20250716
  Serious: Yes (Other)
  Sender: COOPERSURGICAL
  Company Number: US-COOPERSURGICAL, INC.-2025CPS003663

PATIENT
  Age: 39 Year
  Sex: Female
  Weight: 63.492 kg

DRUGS (1)
  1. PARAGARD T 380A [Suspect]
     Active Substance: COPPER
     Route: 015
     Dates: start: 201110

REACTIONS (4)
  - Caesarean section [Recovered/Resolved]
  - Female sterilisation [Recovered/Resolved]
  - Pregnancy with contraceptive device [Recovered/Resolved]
  - Drug ineffective [Unknown]

NARRATIVE: CASE EVENT DATE: 20121113
